FAERS Safety Report 21164434 (Version 11)
Quarter: 2023Q4

REPORT INFORMATION
  Report Type: Spontaneous
  Country: CA (occurrence: CA)
  Receive Date: 20220803
  Receipt Date: 20231020
  Transmission Date: 20240110
  Serious: Yes (Other)
  Sender: FDA-Public Use
  Company Number: CA-CELLTRION INC.-2022CA010144

PATIENT

DRUGS (12)
  1. INFLECTRA [Suspect]
     Active Substance: INFLIXIMAB-DYYB
     Indication: Crohn^s disease
     Dosage: 10 MG/KG EVERY 7 WEEK
     Route: 042
     Dates: start: 20220603, end: 20220603
  2. INFLECTRA [Suspect]
     Active Substance: INFLIXIMAB-DYYB
     Dosage: 10 MG/KG EVERY 7 WEEK (700 MG)
     Route: 042
     Dates: start: 20220722, end: 20220722
  3. INFLECTRA [Suspect]
     Active Substance: INFLIXIMAB-DYYB
     Dosage: 10 MG/KG EVERY 7 WEEK (700 MG)
     Route: 042
     Dates: start: 20220909
  4. INFLECTRA [Suspect]
     Active Substance: INFLIXIMAB-DYYB
     Dosage: 10 MG/KG EVERY 7 WEEK (700 MG)
     Route: 042
     Dates: start: 20221028
  5. INFLECTRA [Suspect]
     Active Substance: INFLIXIMAB-DYYB
     Dosage: 10 MG/KG EVERY 7 WEEK (700 MG)
     Route: 042
     Dates: start: 20221216
  6. INFLECTRA [Suspect]
     Active Substance: INFLIXIMAB-DYYB
     Dosage: 700 MG, 10 MG/KG EVERY 7 WEEK
     Route: 042
     Dates: start: 20230127
  7. INFLECTRA [Suspect]
     Active Substance: INFLIXIMAB-DYYB
     Dosage: 10 MG/KG EVERY 7 WEEK
     Route: 042
     Dates: start: 20230629
  8. INFLECTRA [Suspect]
     Active Substance: INFLIXIMAB-DYYB
     Dosage: 700 MG (10MG/KG), 7 WEEKS AND 1 DAY
     Route: 042
     Dates: start: 20230818
  9. INFLECTRA [Suspect]
     Active Substance: INFLIXIMAB-DYYB
     Dosage: 10 MG/KG (700 MG), EVERY 8 WEEKS
     Route: 042
     Dates: start: 20231011
  10. DIMENHYDRINATE [Concomitant]
     Active Substance: DIMENHYDRINATE
     Indication: Premedication
     Dosage: 50 MG
     Route: 042
     Dates: start: 20220722, end: 20220722
  11. DIMENHYDRINATE [Concomitant]
     Active Substance: DIMENHYDRINATE
     Dosage: 50 MG
     Dates: start: 20230127, end: 20230127
  12. HYDROCORTISONE [Concomitant]
     Active Substance: HYDROCORTISONE
     Indication: Premedication
     Dosage: 100 MG

REACTIONS (18)
  - Blood pressure increased [Unknown]
  - COVID-19 [Recovered/Resolved]
  - Condition aggravated [Recovered/Resolved]
  - Malaise [Unknown]
  - Mucous stools [Unknown]
  - Aphthous ulcer [Recovered/Resolved]
  - Abdominal distension [Unknown]
  - Hot flush [Unknown]
  - Dyspnoea [Unknown]
  - Heart rate decreased [Not Recovered/Not Resolved]
  - Nausea [Not Recovered/Not Resolved]
  - Fatigue [Unknown]
  - Headache [Recovered/Resolved]
  - Dizziness [Unknown]
  - Drug level above therapeutic [Unknown]
  - Off label use [Unknown]
  - Off label use [Unknown]
  - Intentional product use issue [Unknown]

NARRATIVE: CASE EVENT DATE: 20220101
